FAERS Safety Report 25173107 (Version 1)
Quarter: 2025Q2

REPORT INFORMATION
  Report Type: Spontaneous
  Country: GT (occurrence: GT)
  Receive Date: 20250408
  Receipt Date: 20250408
  Transmission Date: 20250717
  Serious: Yes (Other)
  Sender: NOVARTIS
  Company Number: GT-002147023-NVSC2025GT054512

PATIENT
  Age: 66 Year
  Sex: Female

DRUGS (1)
  1. EXFORGE [Suspect]
     Active Substance: AMLODIPINE BESYLATE\VALSARTAN
     Indication: Hypertension
     Dosage: UNK UNK, QD, 10/320MG
     Route: 048

REACTIONS (1)
  - Cerebral palsy [Not Recovered/Not Resolved]

NARRATIVE: CASE EVENT DATE: 20220101
